FAERS Safety Report 8099638-2 (Version None)
Quarter: 2012Q1

REPORT INFORMATION
  Report Type: 
  Country: None (occurrence: None)
  Receive Date: 20120129
  Receipt Date: 20111007
  Transmission Date: 20120608
  Serious: No
  Sender: FDA-Public Use
  Company Number: US-ABBOTT-11P-163-0862208-00

PATIENT
  Age: 64 Year
  Sex: Female

DRUGS (7)
  1. PREDNISONE TAB [Concomitant]
     Indication: PRODUCT USED FOR UNKNOWN INDICATION
  2. HUMIRA [Suspect]
     Indication: RHEUMATOID ARTHRITIS
  3. SIMVASTATIN [Concomitant]
     Indication: BLOOD CHOLESTEROL INCREASED
  4. ENALAPRIL [Concomitant]
     Indication: HYPERTENSION
  5. TRAMADOL HCL [Concomitant]
     Indication: PAIN
     Dosage: 1 EVERY 6 HOURS, AS NEEDED
  6. AZATHIOPRINE [Concomitant]
     Indication: RHEUMATOID ARTHRITIS
  7. METFORMIN HCL [Concomitant]
     Indication: DIABETES MELLITUS

REACTIONS (1)
  - DRUG INEFFECTIVE [None]
